FAERS Safety Report 24907440 (Version 1)
Quarter: 2025Q1

REPORT INFORMATION
  Report Type: Spontaneous
  Country: US (occurrence: US)
  Receive Date: 20250130
  Receipt Date: 20250130
  Transmission Date: 20250408
  Serious: Yes (Other)
  Sender: AMGEN
  Company Number: US-AMGEN-USASP2025016059

PATIENT
  Sex: Male

DRUGS (13)
  1. PREDNISONE [Suspect]
     Active Substance: PREDNISONE
     Indication: Immunosuppression
     Route: 065
  2. PREDNISONE [Suspect]
     Active Substance: PREDNISONE
     Dosage: 5 MILLIGRAM, Q6H
     Route: 065
  3. PREDNISONE [Suspect]
     Active Substance: PREDNISONE
     Dosage: 5 MILLIGRAM, Q6H
     Route: 065
  4. THYMOGLOBULIN [Concomitant]
     Active Substance: LAPINE T-LYMPHOCYTE IMMUNE GLOBULIN
     Route: 065
  5. TACROLIMUS [Concomitant]
     Active Substance: TACROLIMUS
     Route: 065
  6. MYCOPHENOLIC ACID [Concomitant]
     Active Substance: MYCOPHENOLIC ACID
     Route: 065
  7. MYCOPHENOLIC ACID [Concomitant]
     Active Substance: MYCOPHENOLIC ACID
     Dosage: 360 MILLIGRAM, BID
     Route: 065
  8. SIROLIMUS [Concomitant]
     Active Substance: SIROLIMUS
     Dosage: 2 MILLIGRAM, QD
     Route: 065
     Dates: start: 201603
  9. SIROLIMUS [Concomitant]
     Active Substance: SIROLIMUS
     Dosage: 1 MILLIGRAM, QD
     Route: 065
     Dates: start: 201603
  10. SIROLIMUS [Concomitant]
     Active Substance: SIROLIMUS
     Dosage: 1 MILLIGRAM, QD
     Route: 065
     Dates: start: 201603
  11. NIVOLUMAB [Concomitant]
     Active Substance: NIVOLUMAB
     Route: 065
     Dates: start: 201910
  12. IPILIMUMAB [Concomitant]
     Active Substance: IPILIMUMAB
     Route: 065
     Dates: start: 201910
  13. SOLU-MEDROL [Concomitant]
     Active Substance: METHYLPREDNISOLONE SODIUM SUCCINATE
     Dosage: 500 MILLIGRAM, QD
     Route: 040

REACTIONS (5)
  - Squamous cell carcinoma of skin [Unknown]
  - Malignant melanoma [Unknown]
  - Metastases to lymph nodes [Unknown]
  - Metastases to liver [Unknown]
  - Transplant rejection [Recovering/Resolving]

NARRATIVE: CASE EVENT DATE: 20170101
